FAERS Safety Report 8539944-8 (Version None)
Quarter: 2012Q3

REPORT INFORMATION
  Report Type: 
  Country: None (occurrence: None)
  Receive Date: 20120726
  Receipt Date: 20120723
  Transmission Date: 20120928
  Serious: Yes (Other)
  Sender: FDA-Public Use
  Company Number: US-PFIZER INC-2012138571

PATIENT
  Sex: Female
  Weight: 63 kg

DRUGS (12)
  1. LYRICA [Suspect]
     Indication: FIBROMYALGIA
     Dosage: 150 MG, 2X/DAY
  2. ONDANSETRON [Concomitant]
     Dosage: 8 MG, AS NEEDED
  3. DOCUSATE [Concomitant]
     Indication: CONSTIPATION
     Dosage: 100 MG, AS NEEDED
  4. LYRICA [Suspect]
     Indication: NEUROPATHY PERIPHERAL
     Dosage: 300 MG, 2X/DAY
  5. DEXAMETHASONE [Concomitant]
     Indication: ABDOMINAL DISCOMFORT
     Dosage: 8 MG, 2X/DAY
  6. XANAX [Suspect]
     Indication: BIPOLAR DISORDER
     Dosage: 1 MG, 3X/DAY
     Dates: start: 20110101
  7. GABAPENTIN [Suspect]
     Dosage: 300 MG, DAILY
  8. PROCHLORPERAZINE [Concomitant]
     Indication: VOMITING
  9. LORATADINE [Concomitant]
     Indication: ALLERGY TO PLANTS
     Dosage: 10 MG, DAILY
  10. ONDANSETRON [Concomitant]
     Indication: ABDOMINAL DISCOMFORT
     Dosage: 8 MG, 2X/DAY
  11. DEXAMETHASONE [Concomitant]
     Dosage: 8 MG, AS NEEDED
  12. PROCHLORPERAZINE [Concomitant]
     Indication: NAUSEA
     Dosage: 10 MG, AS NEEDED

REACTIONS (2)
  - DRUG INEFFECTIVE [None]
  - OVARIAN CANCER [None]
